FAERS Safety Report 16305573 (Version 7)
Quarter: 2019Q3

REPORT INFORMATION
  Report Type: Report from Study
  Country: MX (occurrence: MX)
  Receive Date: 20190513
  Receipt Date: 20190820
  Transmission Date: 20191004
  Serious: Yes (Other)
  Sender: FDA-Public Use
  Company Number: MX-AMGEN-MEXCT2019072985

PATIENT
  Age: 81 Year
  Sex: Female

DRUGS (12)
  1. METOPROLOL. [Concomitant]
     Active Substance: METOPROLOL
     Dosage: UNK
     Dates: start: 2011
  2. CLOPIDOGREL [Concomitant]
     Active Substance: CLOPIDOGREL BISULFATE
     Dosage: UNK
     Dates: start: 2008
  3. INSULIN GLARGINE [Concomitant]
     Active Substance: INSULIN GLARGINE
     Dosage: UNK
     Dates: start: 20180823
  4. DARBEPOETIN ALFA [Suspect]
     Active Substance: DARBEPOETIN ALFA
     Indication: ANAEMIA
     Dosage: 30 MICROGRAM, Q2WK
     Route: 058
     Dates: start: 20180815, end: 20190101
  5. FOLIC ACID. [Concomitant]
     Active Substance: FOLIC ACID
     Dosage: UNK
     Dates: start: 201806
  6. ATORVASTATIN [Concomitant]
     Active Substance: ATORVASTATIN
     Dosage: UNK
     Dates: start: 2015
  7. DARBEPOETIN ALFA [Suspect]
     Active Substance: DARBEPOETIN ALFA
     Dosage: 25 MICROGRAM, Q4WK
     Route: 058
     Dates: start: 20190327
  8. VITAMIN B 1-6-12 [Concomitant]
     Active Substance: CYANOCOBALAMIN\PYRIDOXINE\THIAMINE
     Dosage: UNK
     Dates: start: 201806
  9. DARBEPOETIN ALFA [Suspect]
     Active Substance: DARBEPOETIN ALFA
     Dosage: 20 MICROGRAM, Q4WK
     Route: 058
     Dates: start: 20190102, end: 20190326
  10. NIFEDIPINO [Concomitant]
     Active Substance: NIFEDIPINE
     Dosage: UNK
     Dates: start: 2011
  11. FERROUS FUMARATE [Concomitant]
     Active Substance: FERROUS FUMARATE
     Dosage: UNK
     Dates: start: 201806
  12. FUROSEMIDE. [Concomitant]
     Active Substance: FUROSEMIDE
     Dosage: UNK
     Dates: start: 20190304

REACTIONS (1)
  - Cholecystitis chronic [Not Recovered/Not Resolved]

NARRATIVE: CASE EVENT DATE: 20190402
